FAERS Safety Report 8962788 (Version 1)
Quarter: 2012Q4

REPORT INFORMATION
  Report Type: 
  Country: US (occurrence: US)
  Receive Date: 20121213
  Receipt Date: 20121213
  Transmission Date: 20130627
  Serious: No
  Sender: FDA-Public Use
  Company Number: US-PFIZER INC-2012310429

PATIENT
  Sex: Female

DRUGS (6)
  1. TOVIAZ [Suspect]
     Dosage: UNK
  2. DETROL [Suspect]
     Dosage: UNK
  3. PRAVASTATIN SODIUM [Suspect]
     Dosage: UNK
  4. OXYBUTIN [Suspect]
     Dosage: UNK
  5. ZETIA [Suspect]
     Dosage: UNK
  6. VESICARE [Suspect]
     Dosage: UNK

REACTIONS (3)
  - Constipation [Unknown]
  - Abdominal pain upper [Unknown]
  - Abdominal distension [Unknown]
